FAERS Safety Report 10288328 (Version 3)
Quarter: 2014Q3

REPORT INFORMATION
  Report Type: Spontaneous
  Country: US (occurrence: US)
  Receive Date: 20140709
  Receipt Date: 20140731
  Transmission Date: 20150326
  Serious: Yes (Other)
  Sender: FDA-Public Use
  Company Number: US-PFIZER INC-2014188166

PATIENT
  Age: 76 Year
  Sex: Female

DRUGS (1)
  1. LYRICA [Suspect]
     Active Substance: PREGABALIN
     Dosage: 150 MG, 3X/DAY
     Route: 048

REACTIONS (7)
  - Neuropathy peripheral [Unknown]
  - Discomfort [Unknown]
  - Pain in extremity [Unknown]
  - Gait disturbance [Unknown]
  - Neuralgia [Unknown]
  - Arthropathy [Unknown]
  - Pain [Unknown]
